FAERS Safety Report 7927790-5 (Version None)
Quarter: 2011Q4

REPORT INFORMATION
  Report Type: 
  Country: None (occurrence: None)
  Receive Date: 20111116
  Receipt Date: 20111104
  Transmission Date: 20120403
  Serious: Yes (Other)
  Sender: FDA-Public Use
  Company Number: GB-1185315

PATIENT
  Age: 63 Year
  Sex: Male

DRUGS (4)
  1. ANTIBIOTICS [Concomitant]
  2. TRAVATAN [Suspect]
     Indication: GLAUCOMA
     Dosage: (1 GTT QD OPHTHALMIC)
     Route: 047
     Dates: start: 20100914, end: 20101114
  3. OMEPRAZOLE [Concomitant]
  4. RIFAMPICIN [Concomitant]

REACTIONS (2)
  - VISUAL ACUITY REDUCED [None]
  - CYSTOID MACULAR OEDEMA [None]
